FAERS Safety Report 7481532-9 (Version None)
Quarter: 2011Q2

REPORT INFORMATION
  Report Type: 
  Country: None (occurrence: None)
  Receive Date: 20110516
  Receipt Date: 20110512
  Transmission Date: 20111010
  Serious: Yes (Death, Life-Threatening, Hospitalization)
  Sender: FDA-Public Use
  Company Number: PHHY2011DE26899

PATIENT
  Sex: Male

DRUGS (7)
  1. TASIGNA [Suspect]
     Indication: CHRONIC MYELOID LEUKAEMIA
     Dosage: 800 MG PER DAY
     Route: 048
     Dates: start: 20050801, end: 20110331
  2. PREDNISOLONE [Concomitant]
     Indication: RHEUMATOID ARTHRITIS
     Dosage: 5 MG PER DAY
     Route: 048
  3. OMEPRAZOLE [Concomitant]
     Dosage: 20 MG PER DAY
     Route: 048
  4. AMLODIPINE BESYLATE [Concomitant]
     Indication: HYPERTENSION
     Dosage: 10 MG PER DAY
     Route: 048
  5. ENALAPRIL [Concomitant]
     Indication: HYPERTENSION
     Dosage: 10 MG PER DAY
     Route: 048
  6. ANTIHYPERTENSIVES [Concomitant]
     Indication: HYPERTENSION
  7. ACE INHIBITOR NOS [Concomitant]

REACTIONS (9)
  - NEUROPATHY PERIPHERAL [None]
  - DIZZINESS [None]
  - MUSCLE CONTRACTIONS INVOLUNTARY [None]
  - ARTERIOSCLEROSIS [None]
  - CONVULSION [None]
  - HYPERHIDROSIS [None]
  - CEREBELLAR INFARCTION [None]
  - BRAIN HERNIATION [None]
  - DIPLOPIA [None]
